FAERS Safety Report 23409102 (Version 1)
Quarter: 2024Q1

REPORT INFORMATION
  Report Type: Spontaneous
  Country: US (occurrence: None)
  Receive Date: 20240115
  Receipt Date: 20240115
  Transmission Date: 20240410
  Serious: Yes (Other)
  Sender: FDA-Public Use
  Company Number: None

PATIENT
  Age: 63 Year
  Sex: Female

DRUGS (5)
  1. PROLIA [Suspect]
     Active Substance: DENOSUMAB
     Indication: Osteoporosis
     Dates: start: 20230912, end: 20230912
  2. PRAVASTATIN [Concomitant]
     Active Substance: PRAVASTATIN
  3. Calcium with Vitamin 3 [Concomitant]
  4. B-12 supplements [Concomitant]
  5. ASPIRIN [Concomitant]
     Active Substance: ASPIRIN

REACTIONS (4)
  - Meniscus injury [None]
  - Photopsia [None]
  - Lacunar infarction [None]
  - Blood cholesterol increased [None]

NARRATIVE: CASE EVENT DATE: 20230926
